FAERS Safety Report 7805459-5 (Version None)
Quarter: 2011Q4

REPORT INFORMATION
  Report Type: 
  Country: None (occurrence: None)
  Receive Date: 20111010
  Receipt Date: 20110928
  Transmission Date: 20120403
  Serious: Yes (Hospitalization)
  Sender: FDA-Public Use
  Company Number: PHEH2011US05529

PATIENT
  Sex: Female

DRUGS (2)
  1. GILENYA [Suspect]
     Indication: MULTIPLE SCLEROSIS
     Dosage: 0.5 MG, QD
     Route: 048
     Dates: start: 20110101
  2. SIMVASTATIN [Concomitant]

REACTIONS (6)
  - CHEST PAIN [None]
  - DYSPNOEA [None]
  - HEADACHE [None]
  - HEPATITIS [None]
  - DEPRESSION [None]
  - MIGRAINE [None]
